FAERS Safety Report 6790775-9 (Version None)
Quarter: 2010Q2

REPORT INFORMATION
  Report Type: 
  Country: None (occurrence: None)
  Receive Date: 20100624
  Receipt Date: 20100614
  Transmission Date: 20101027
  Serious: Yes (Hospitalization)
  Sender: FDA-Public Use
  Company Number: JP-PFIZER INC-2010074442

PATIENT

DRUGS (1)
  1. SUTENT [Suspect]

REACTIONS (1)
  - HYPOGLYCAEMIA [None]
